FAERS Safety Report 5568772-0 (Version None)
Quarter: 2007Q4

REPORT INFORMATION
  Report Type: 
  Country: None (occurrence: None)
  Receive Date: 20071220
  Receipt Date: 20070102
  Transmission Date: 20080405
  Serious: No
  Sender: FDA-Public Use
  Company Number: A0633232A

PATIENT
  Age: 71 Year
  Sex: Male

DRUGS (9)
  1. AVODART [Suspect]
     Indication: URINARY RETENTION
     Dosage: .5MG PER DAY
     Route: 048
  2. METOPROLOL SUCCINATE [Concomitant]
  3. DIGOXIN [Concomitant]
  4. WARFARIN SODIUM [Concomitant]
  5. INSULIN [Concomitant]
  6. METFORMIN HCL [Concomitant]
  7. FOLIC ACID [Concomitant]
  8. VITAMINS [Concomitant]
  9. FISH OIL [Concomitant]

REACTIONS (1)
  - PROSTATIC SPECIFIC ANTIGEN INCREASED [None]
